FAERS Safety Report 24117388 (Version 1)
Quarter: 2024Q3

REPORT INFORMATION
  Report Type: Spontaneous
  Country: CN (occurrence: CN)
  Receive Date: 20240722
  Receipt Date: 20240722
  Transmission Date: 20241017
  Serious: Yes (Hospitalization)
  Sender: NOVO NORDISK
  Company Number: None

PATIENT
  Age: 34 Year
  Sex: Male
  Weight: 116 kg

DRUGS (1)
  1. LEVEMIR [Suspect]
     Active Substance: INSULIN DETEMIR
     Indication: Type 2 diabetes mellitus
     Dosage: 14 IU, QD
     Route: 058
     Dates: start: 20240530, end: 20240602

REACTIONS (9)
  - Hypotension [Recovering/Resolving]
  - Injection site pain [Recovering/Resolving]
  - Injection site erythema [Recovering/Resolving]
  - Injection site swelling [Recovering/Resolving]
  - Headache [Unknown]
  - Pruritus [Unknown]
  - Nausea [Unknown]
  - Dizziness [Unknown]
  - Rash erythematous [Unknown]

NARRATIVE: CASE EVENT DATE: 20240531
